FAERS Safety Report 4486849-8 (Version None)
Quarter: 2004Q4

REPORT INFORMATION
  Report Type: 
  Country: None (occurrence: None)
  Receive Date: 20041027
  Receipt Date: 20041019
  Transmission Date: 20050328
  Serious: Yes (Death, Hospitalization)
  Sender: FDA-Public Use
  Company Number: PHBS2004GR14169

PATIENT
  Age: 53 Year
  Sex: Male

DRUGS (10)
  1. OCTREOTIDE ACETATE [Suspect]
     Indication: CARCINOID TUMOUR PULMONARY
     Dosage: .5 MG, TID
     Route: 058
  2. OCTREOTIDE ACETATE [Suspect]
     Dosage: 110-190 MCI PER SESSION, QMO
     Route: 025
  3. OCTREOTIDE ACETATE [Suspect]
     Dosage: 50-200 UG/H
  4. ANTHRACYCLINES [Concomitant]
  5. OCTREOTIDE WITH POLY(D L-LACTIDE-CO-GLYCOLIDE) [Suspect]
     Indication: CARCINOID TUMOUR PULMONARY
     Dosage: 30 MG, QMO
  6. OCTREOTIDE WITH POLY(D L-LACTIDE-CO-GLYCOLIDE) [Suspect]
     Dosage: 30 MG BI-MONTHLY
  7. INTERFERON ALFA [Concomitant]
  8. LOPERAMIDE HCL [Concomitant]
  9. GLUCOCORTICOIDS [Concomitant]
  10. ANTI-HISTAMINE TAB [Concomitant]

REACTIONS (10)
  - 5-HYDROXYINDOLACETIC ACID INCREASED [None]
  - BLOOD CHROMOGRANIN A INCREASED [None]
  - CARCINOID SYNDROME [None]
  - CONDITION AGGRAVATED [None]
  - DIARRHOEA [None]
  - GENERAL PHYSICAL HEALTH DETERIORATION [None]
  - HYPOKALAEMIA [None]
  - ILEUS PARALYTIC [None]
  - MALIGNANT NEOPLASM PROGRESSION [None]
  - STAPHYLOCOCCAL SEPSIS [None]
